FAERS Safety Report 9422472 (Version 1)
Quarter: 2013Q3

REPORT INFORMATION
  Report Type: Report from Study
  Country: US (occurrence: US)
  Receive Date: 20130726
  Receipt Date: 20130726
  Transmission Date: 20140515
  Serious: Yes (Hospitalization)
  Sender: FDA-Public Use
  Company Number: US-ROCHE-1214704

PATIENT
  Age: 58 Year
  Sex: Male
  Weight: 69.7 kg

DRUGS (22)
  1. BEVACIZUMAB [Suspect]
     Indication: SQUAMOUS CELL CARCINOMA OF HEAD AND NECK
     Dosage: OVER 30 TO 90 MIN ON DAY 1
     Route: 042
     Dates: start: 20130117, end: 20130410
  2. CARBOPLATIN [Suspect]
     Indication: SQUAMOUS CELL CARCINOMA OF HEAD AND NECK
     Dosage: AUC 6 OVER 30 MIN ON DAY 1
     Route: 042
     Dates: start: 20130117
  3. DOCETAXEL [Suspect]
     Indication: SQUAMOUS CELL CARCINOMA OF HEAD AND NECK
     Dosage: OVER 1 HR ON DAY 1
     Route: 042
     Dates: start: 20130117
  4. CLINDAMYCIN [Suspect]
     Indication: PRODUCT USED FOR UNKNOWN INDICATION
     Route: 065
  5. CETUXIMAB [Suspect]
     Indication: PRODUCT USED FOR UNKNOWN INDICATION
     Route: 065
     Dates: start: 20130508
  6. FLOMAX [Concomitant]
  7. MS CONTIN [Concomitant]
  8. OXYCODONE [Concomitant]
  9. PHENERGAN [Concomitant]
  10. SALAGEN [Concomitant]
  11. SIMVASTATIN [Concomitant]
  12. SYNTHROID [Concomitant]
  13. VITAMIN B12 [Concomitant]
  14. ZOFRAN [Concomitant]
  15. POTASSIUM CHLORIDE [Concomitant]
  16. PERCOCET [Concomitant]
  17. MAGNESIUM SULFATE [Concomitant]
  18. LISINOPRIL [Concomitant]
  19. FINASTERIDE [Concomitant]
  20. ATIVAN [Concomitant]
  21. CIPROFLOXACIN [Concomitant]
  22. ROXICODONE [Concomitant]

REACTIONS (10)
  - Embolism [Recovered/Resolved]
  - Renal failure acute [Unknown]
  - Syncope [Unknown]
  - Dehydration [Unknown]
  - Blood creatinine increased [Unknown]
  - Weight decreased [Unknown]
  - Diarrhoea [Unknown]
  - Infusion related reaction [Unknown]
  - Renal failure acute [Unknown]
  - Syncope [Unknown]
